FAERS Safety Report 24612869 (Version 1)
Quarter: 2024Q4

REPORT INFORMATION
  Report Type: Spontaneous
  Country: US (occurrence: None)
  Receive Date: 20241112
  Receipt Date: 20241112
  Transmission Date: 20250115
  Serious: Yes (Death)
  Sender: Public
  Company Number: None

PATIENT
  Age: 65 Year
  Sex: Male
  Weight: 127.01 kg

DRUGS (13)
  1. OMNITROPE [Suspect]
     Active Substance: SOMATROPIN
     Indication: Growth hormone deficiency
     Dosage: FREQUENCY : DAILY;?
     Route: 058
     Dates: start: 20240508, end: 20241030
  2. ELIQUIS [Concomitant]
     Active Substance: APIXABAN
  3. FINASTERIDE [Concomitant]
     Active Substance: FINASTERIDE
  4. JARDIANCE [Concomitant]
     Active Substance: EMPAGLIFLOZIN
  5. LISINOPRIL [Concomitant]
     Active Substance: LISINOPRIL
  6. PENTOXIFYLLINE [Concomitant]
     Active Substance: PENTOXIFYLLINE
  7. POTASSIUM CHLORIDE [Concomitant]
     Active Substance: POTASSIUM CHLORIDE
  8. ARMOUR THYROID [Concomitant]
  9. TRULICITY [Concomitant]
     Active Substance: DULAGLUTIDE
  10. VITAMIN D SOFTGELS [Concomitant]
  11. ZAFIRLUKAST [Concomitant]
     Active Substance: ZAFIRLUKAST
  12. GLIMEPIRIDE [Concomitant]
     Active Substance: GLIMEPIRIDE
  13. TIZANIDINE [Concomitant]
     Active Substance: TIZANIDINE

REACTIONS (1)
  - Death [None]

NARRATIVE: CASE EVENT DATE: 20240101
